FAERS Safety Report 5125085-9 (Version None)
Quarter: 2006Q4

REPORT INFORMATION
  Report Type: 
  Country: None (occurrence: None)
  Receive Date: 20061006
  Receipt Date: 20060927
  Transmission Date: 20070319
  Serious: Yes (Disabling)
  Sender: FDA-Public Use
  Company Number: 2006102360

PATIENT
  Sex: Male

DRUGS (4)
  1. DELTACORTRIL [Suspect]
     Indication: MYALGIA
  2. FUROSEMIDE [Concomitant]
  3. LISINOPRIL [Concomitant]
  4. GOSERELIN [Concomitant]

REACTIONS (1)
  - SKIN ODOUR ABNORMAL [None]
